FAERS Safety Report 9606959 (Version 1)
Quarter: 2013Q4

REPORT INFORMATION
  Report Type: Spontaneous
  Country: US (occurrence: US)
  Receive Date: 20131008
  Receipt Date: 20131008
  Transmission Date: 20140711
  Serious: No
  Sender: FDA-Public Use
  Company Number: US-009507513-1310USA000152

PATIENT
  Sex: Female

DRUGS (4)
  1. NASONEX [Suspect]
     Indication: SINUSITIS
     Route: 045
  2. NASONEX [Suspect]
     Indication: ASTHMA
  3. NASONEX [Suspect]
     Indication: EMPHYSEMA
  4. PREDNISONE [Suspect]
     Route: 048

REACTIONS (5)
  - Dyspnoea [Unknown]
  - Eye pruritus [Unknown]
  - Lung infection [Unknown]
  - Sinusitis [Unknown]
  - Abdominal distension [Unknown]
